FAERS Safety Report 6269154-9 (Version None)
Quarter: 2009Q3

REPORT INFORMATION
  Report Type: 
  Country: None (occurrence: None)
  Receive Date: 20090715
  Receipt Date: 20090710
  Transmission Date: 20100115
  Serious: Yes (Hospitalization)
  Sender: FDA-Public Use
  Company Number: JP-JNJFOC-20090703150

PATIENT
  Sex: Female
  Weight: 62 kg

DRUGS (8)
  1. PLACEBO [Suspect]
     Route: 058
  2. PLACEBO [Suspect]
     Route: 058
  3. PLACEBO [Suspect]
     Indication: RHEUMATOID ARTHRITIS
     Route: 058
  4. CELECOX [Suspect]
     Indication: RHEUMATOID ARTHRITIS
     Route: 048
  5. PREDNISOLONE [Concomitant]
     Indication: RHEUMATOID ARTHRITIS
     Route: 048
  6. ACTONEL [Concomitant]
     Indication: OSTEOPOROSIS
     Route: 048
  7. ACINON [Concomitant]
     Indication: GASTRITIS PROPHYLAXIS
     Route: 048
  8. MIGLITOL [Concomitant]
     Indication: DIABETES MELLITUS
     Route: 048

REACTIONS (1)
  - ORGANISING PNEUMONIA [None]
